FAERS Safety Report 9303664 (Version 1)
Quarter: 2013Q2

REPORT INFORMATION
  Report Type: Spontaneous
  Country: US (occurrence: None)
  Receive Date: 20130521
  Receipt Date: 20130521
  Transmission Date: 20140414
  Serious: Yes (Hospitalization)
  Sender: FDA-Public Use
  Company Number: None

PATIENT
  Age: 57 Year
  Sex: Female
  Weight: 75 kg

DRUGS (11)
  1. ALFA 2 INTERFERON 2B (INTRON-A) [Suspect]
     Dates: end: 20130513
  2. BACTRIM DS [Concomitant]
  3. CELEXA [Concomitant]
  4. LORAZEPAM [Concomitant]
  5. NEXIUM [Concomitant]
  6. NYSTATIN [Concomitant]
  7. ONDANSETRON [Concomitant]
  8. SIMVASTATIN [Concomitant]
  9. SYNTHROID [Concomitant]
  10. VICODIN [Concomitant]
  11. PROMETHAZINE [Concomitant]

REACTIONS (5)
  - Loss of consciousness [None]
  - Convulsion [None]
  - Transient ischaemic attack [None]
  - Presyncope [None]
  - Impaired driving ability [None]
